FAERS Safety Report 5027355-1 (Version None)
Quarter: 2006Q2

REPORT INFORMATION
  Report Type: 
  Country: None (occurrence: None)
  Receive Date: 20060501
  Receipt Date: 20060206
  Transmission Date: 20061013
  Serious: No
  Sender: FDA-Public Use
  Company Number: 2006PV008227

PATIENT
  Age: 50 Year
  Sex: Male
  Weight: 122.9248 kg

DRUGS (2)
  1. SYMLIN [Suspect]
     Indication: DIABETES MELLITUS NON-INSULIN-DEPENDENT
     Dosage: SEE IMAGE
     Route: 058
     Dates: start: 20051010, end: 20051223
  2. SYMLIN [Suspect]
     Indication: DIABETES MELLITUS NON-INSULIN-DEPENDENT
     Dosage: SEE IMAGE
     Route: 058
     Dates: start: 20060101

REACTIONS (6)
  - ARTHRALGIA [None]
  - ARTHRITIS [None]
  - CHILLS [None]
  - DECREASED APPETITE [None]
  - PYREXIA [None]
  - WEIGHT DECREASED [None]
